FAERS Safety Report 25999961 (Version 1)
Quarter: 2025Q4

REPORT INFORMATION
  Report Type: Spontaneous
  Country: GB (occurrence: GB)
  Receive Date: 20251105
  Receipt Date: 20251105
  Transmission Date: 20260117
  Serious: Yes (Other)
  Sender: TEVA
  Company Number: None

PATIENT
  Age: 2 Month

DRUGS (1)
  1. FLUOXETINE [Suspect]
     Active Substance: FLUOXETINE HYDROCHLORIDE
     Indication: Adverse drug reaction
     Dosage: 60MG
     Route: 065

REACTIONS (6)
  - Abdominal pain [Recovering/Resolving]
  - Poor feeding infant [Recovering/Resolving]
  - Poor quality sleep [Recovering/Resolving]
  - Depressed mood [Recovering/Resolving]
  - Screaming [Recovering/Resolving]
  - Abdominal pain upper [Recovering/Resolving]
